FAERS Safety Report 16952923 (Version 3)
Quarter: 2019Q4

REPORT INFORMATION
  Report Type: Spontaneous
  Country: GB (occurrence: GB)
  Receive Date: 20191023
  Receipt Date: 20191223
  Transmission Date: 20200122
  Serious: Yes (Other)
  Sender: FDA-Public Use
  Company Number: NVSC2019GB013152

PATIENT

DRUGS (1)
  1. COSENTYX [Suspect]
     Active Substance: SECUKINUMAB
     Indication: PRODUCT USED FOR UNKNOWN INDICATION
     Dosage: UNK
     Route: 065

REACTIONS (9)
  - Irritability [Unknown]
  - Oral pain [Unknown]
  - Glossodynia [Unknown]
  - Insomnia [Unknown]
  - Burn oral cavity [Unknown]
  - Lip pain [Unknown]
  - Pain [Unknown]
  - Paraesthesia oral [Unknown]
  - Oropharyngeal pain [Recovered/Resolved]
